FAERS Safety Report 16475740 (Version 1)
Quarter: 2019Q2

REPORT INFORMATION
  Report Type: Spontaneous
  Country: TW (occurrence: TW)
  Receive Date: 20190625
  Receipt Date: 20190625
  Transmission Date: 20190711
  Serious: Yes (Hospitalization)
  Sender: FDA-Public Use
  Company Number: TW-NOVOPROD-667284

PATIENT
  Age: 4 Year
  Sex: Male
  Weight: 19.4 kg

DRUGS (2)
  1. NOVOEIGHT [Suspect]
     Active Substance: ANTIHEMOPHILIC FACTOR, HUMAN RECOMBINANT
     Dosage: 100 UNIT/KG
     Route: 042
     Dates: start: 20190601, end: 20190601
  2. NOVOEIGHT [Suspect]
     Active Substance: ANTIHEMOPHILIC FACTOR, HUMAN RECOMBINANT
     Indication: FACTOR VIII DEFICIENCY
     Dosage: 50 UNIT/KG Q12H
     Route: 042
     Dates: start: 20190531

REACTIONS (3)
  - Rash [Recovered/Resolved]
  - Pyrexia [Unknown]
  - Nasopharyngitis [Unknown]

NARRATIVE: CASE EVENT DATE: 20190601
